FAERS Safety Report 6338753-8 (Version None)
Quarter: 2009Q3

REPORT INFORMATION
  Report Type: 
  Country: None (occurrence: None)
  Receive Date: 20090831
  Receipt Date: 20081021
  Transmission Date: 20100115
  Serious: Yes (Other)
  Sender: FDA-Public Use
  Company Number: APP200801004

PATIENT
  Sex: Female

DRUGS (3)
  1. SENSORCAINE [Suspect]
     Indication: CAESAREAN SECTION
     Dosage: ONCE
     Dates: start: 20081001, end: 20081001
  2. SENSORCAINE [Suspect]
  3. SENSORCAINE [Suspect]

REACTIONS (1)
  - DRUG INEFFECTIVE [None]
